FAERS Safety Report 4636153-X (Version None)
Quarter: 2005Q2

REPORT INFORMATION
  Report Type: 
  Country: None (occurrence: None)
  Receive Date: 20050414
  Receipt Date: 20050414
  Transmission Date: 20051028
  Serious: Yes (Other)
  Sender: FDA-Public Use
  Company Number: None

PATIENT
  Age: 72 Year
  Sex: Female
  Weight: 50.8029 kg

DRUGS (2)
  1. ATENOLOL [Suspect]
     Indication: HYPERTENSION
     Dosage: 100 MG (PO) DAILY
     Route: 048
     Dates: start: 20010901, end: 20011001
  2. MEVACOR [Concomitant]

REACTIONS (2)
  - PALPITATIONS [None]
  - PHARMACEUTICAL PRODUCT COMPLAINT [None]
